FAERS Safety Report 6086439-X (Version None)
Quarter: 2009Q1

REPORT INFORMATION
  Report Type: 
  Country: None (occurrence: None)
  Receive Date: 20090213
  Receipt Date: 20090202
  Transmission Date: 20090719
  Serious: Yes (Death)
  Sender: FDA-Public Use
  Company Number: WAES 0902USA01019

PATIENT
  Age: 84 Year
  Sex: Male

DRUGS (9)
  1. PEPCID RPD [Suspect]
     Dosage: 40 MG DAILY; PO
     Route: 048
     Dates: start: 20071112
  2. CELECOXIB [Suspect]
     Indication: OSTEOARTHRITIS
     Dosage: 200MG DAILY; PO
     Route: 048
     Dates: start: 20080121, end: 20080716
  3. BENET [Concomitant]
  4. DIAZEPAM [Concomitant]
  5. LAC-B [Concomitant]
  6. MUCOSTA [Concomitant]
  7. THEO-DUR [Concomitant]
  8. URSO 250 [Concomitant]
  9. ZYLORIC [Concomitant]

REACTIONS (3)
  - DISSEMINATED INTRAVASCULAR COAGULATION [None]
  - GASTROINTESTINAL HAEMORRHAGE [None]
  - HAEMATEMESIS [None]
